FAERS Safety Report 4864474-4 (Version None)
Quarter: 2005Q4

REPORT INFORMATION
  Report Type: 
  Country: None (occurrence: None)
  Receive Date: 20051222
  Receipt Date: 20051128
  Transmission Date: 20060501
  Serious: Yes (Hospitalization)
  Sender: FDA-Public Use
  Company Number: JP-BRISTOL-MYERS SQUIBB COMPANY-13205984

PATIENT
  Age: 51 Year
  Sex: Female

DRUGS (5)
  1. FLUDECASIN INJ [Suspect]
     Indication: SCHIZOPHRENIA
     Route: 030
  2. NEULEPTIL [Suspect]
     Route: 048
     Dates: start: 20040301
  3. LULLAN [Suspect]
     Route: 048
     Dates: start: 20050620
  4. HIRNAMIN [Suspect]
     Route: 048
     Dates: start: 20050620
  5. LODOPIN [Suspect]
     Route: 048

REACTIONS (2)
  - HEPATIC FUNCTION ABNORMAL [None]
  - HYPERGLYCAEMIA [None]
